FAERS Safety Report 9723071 (Version 36)
Quarter: 2017Q4

REPORT INFORMATION
  Report Type: Spontaneous
  Country: CA (occurrence: CA)
  Receive Date: 20131202
  Receipt Date: 20171002
  Transmission Date: 20180321
  Serious: Yes (Hospitalization, Other)
  Sender: FDA-Public Use
  Company Number: CA-ROCHE-1309691

PATIENT
  Age: 42 Year
  Sex: Female

DRUGS (18)
  1. XOLAIR [Suspect]
     Active Substance: OMALIZUMAB
     Route: 058
     Dates: start: 20160517
  2. XOLAIR [Suspect]
     Active Substance: OMALIZUMAB
     Route: 058
     Dates: start: 20160627
  3. RIVAROXABAN [Suspect]
     Active Substance: RIVAROXABAN
     Indication: PRODUCT USED FOR UNKNOWN INDICATION
     Route: 065
  4. XOLAIR [Suspect]
     Active Substance: OMALIZUMAB
     Route: 058
     Dates: start: 20160921
  5. XOLAIR [Suspect]
     Active Substance: OMALIZUMAB
     Route: 058
     Dates: start: 20161116
  6. XOLAIR [Suspect]
     Active Substance: OMALIZUMAB
     Route: 058
     Dates: start: 20170201
  7. LYRICA [Concomitant]
     Active Substance: PREGABALIN
     Indication: NEURALGIA
     Route: 065
  8. XOLAIR [Suspect]
     Active Substance: OMALIZUMAB
     Route: 058
     Dates: start: 20160315
  9. SYMBICORT [Concomitant]
     Active Substance: BUDESONIDE\FORMOTEROL FUMARATE DIHYDRATE
     Indication: PRODUCT USED FOR UNKNOWN INDICATION
     Dosage: 200 OT, (2 INHHALATIONS)
     Route: 055
     Dates: end: 201409
  10. PULMICORT TURBUHALER [Concomitant]
     Active Substance: BUDESONIDE
     Indication: PRODUCT USED FOR UNKNOWN INDICATION
     Dosage: 200 OT
     Route: 065
     Dates: end: 201409
  11. HYDROMORPHONE [Concomitant]
     Active Substance: HYDROMORPHONE
     Indication: NEURALGIA
     Route: 065
  12. XOLAIR [Suspect]
     Active Substance: OMALIZUMAB
     Route: 058
     Dates: start: 20131120
  13. XOLAIR [Suspect]
     Active Substance: OMALIZUMAB
     Route: 058
     Dates: start: 20161222
  14. XOLAIR [Suspect]
     Active Substance: OMALIZUMAB
     Route: 058
     Dates: start: 20170816
  15. XOLAIR [Suspect]
     Active Substance: OMALIZUMAB
     Route: 058
     Dates: start: 20160419
  16. PREDNISONE. [Concomitant]
     Active Substance: PREDNISONE
     Indication: PRODUCT USED FOR UNKNOWN INDICATION
     Route: 055
     Dates: start: 2012
  17. XOLAIR [Suspect]
     Active Substance: OMALIZUMAB
     Indication: ASTHMA
     Route: 058
     Dates: start: 20131022
  18. BUDESONIDE. [Suspect]
     Active Substance: BUDESONIDE
     Indication: PRODUCT USED FOR UNKNOWN INDICATION
     Route: 055

REACTIONS (31)
  - Dyspnoea [Recovered/Resolved]
  - Gastrointestinal disorder [Unknown]
  - Weight increased [Unknown]
  - Depression [Recovered/Resolved]
  - Influenza like illness [Unknown]
  - Back pain [Unknown]
  - Pain in extremity [Unknown]
  - Fatigue [Not Recovered/Not Resolved]
  - Deep vein thrombosis [Unknown]
  - Bronchitis [Unknown]
  - Headache [Unknown]
  - Dysarthria [Unknown]
  - Dizziness [Unknown]
  - Influenza [Unknown]
  - Malaise [Recovered/Resolved]
  - Fall [Unknown]
  - Paraesthesia [Unknown]
  - Hypoaesthesia [Unknown]
  - Pain [Not Recovered/Not Resolved]
  - Anxiety [Unknown]
  - Rash [Unknown]
  - Monoplegia [Unknown]
  - Fibromyalgia [Not Recovered/Not Resolved]
  - Body temperature decreased [Unknown]
  - Nasopharyngitis [Unknown]
  - Injury [Unknown]
  - Asthma [Unknown]
  - Drug hypersensitivity [Recovered/Resolved]
  - Paralysis [Unknown]
  - Feeling abnormal [Unknown]
  - Herpes zoster [Recovering/Resolving]

NARRATIVE: CASE EVENT DATE: 20131022
